FAERS Safety Report 6151893-1 (Version None)
Quarter: 2009Q2

REPORT INFORMATION
  Report Type: 
  Country: None (occurrence: None)
  Receive Date: 20090408
  Receipt Date: 20090330
  Transmission Date: 20091009
  Serious: Yes (Death, Life-Threatening, Other)
  Sender: FDA-Public Use
  Company Number: 2006JP004951

PATIENT
  Age: 16 Year
  Sex: Female

DRUGS (5)
  1. PROGRAF [Suspect]
     Indication: BONE MARROW TRANSPLANT
  2. METHOTREXATE [Concomitant]
  3. FLUDARABINE PHOSPHATE [Concomitant]
  4. MELPHALAN (MELPHALAN) [Concomitant]
  5. THYMOGLOBULIN [Concomitant]

REACTIONS (9)
  - ACUTE GRAFT VERSUS HOST DISEASE IN INTESTINE [None]
  - BRONCHOPULMONARY ASPERGILLOSIS ALLERGIC [None]
  - CYTOMEGALOVIRUS ENTERITIS [None]
  - DRUG INEFFECTIVE [None]
  - GASTROINTESTINAL ULCER [None]
  - INFECTION [None]
  - MULTI-ORGAN FAILURE [None]
  - RENAL FAILURE ACUTE [None]
  - THROMBOTIC MICROANGIOPATHY [None]
